FAERS Safety Report 23015765 (Version 6)
Quarter: 2024Q1

REPORT INFORMATION
  Report Type: Spontaneous
  Country: US (occurrence: US)
  Receive Date: 20231002
  Receipt Date: 20240105
  Transmission Date: 20240409
  Serious: No
  Sender: FDA-Public Use
  Company Number: US-PFIZER INC-PV202300115683

PATIENT
  Age: 12 Year
  Sex: Male
  Weight: 63.5 kg

DRUGS (3)
  1. GENOTROPIN [Suspect]
     Active Substance: SOMATROPIN
     Indication: Growth hormone deficiency
     Dosage: 2.3 MG, DAILY
  2. GENOTROPIN [Suspect]
     Active Substance: SOMATROPIN
     Dosage: 2.4 MG, DAILY
  3. GENOTROPIN [Suspect]
     Active Substance: SOMATROPIN
     Dosage: 2.2MG EVERY DAY ALTERNATING WITH 2.4MG A DAY FOR 2.3MG AVERAGE BY INJECTION
     Route: 058
     Dates: start: 202307

REACTIONS (5)
  - Product prescribing error [Unknown]
  - Drug dose omission by device [Unknown]
  - Poor quality device used [Unknown]
  - Device leakage [Unknown]
  - Device issue [Unknown]
